FAERS Safety Report 21038907 (Version 1)
Quarter: 2022Q3

REPORT INFORMATION
  Report Type: Spontaneous
  Country: CA (occurrence: CA)
  Receive Date: 20220704
  Receipt Date: 20220704
  Transmission Date: 20221027
  Serious: Yes (Other)
  Sender: FDA-Public Use
  Company Number: CA-BAYER-2022A089526

PATIENT
  Sex: Female

DRUGS (1)
  1. EYLEA [Suspect]
     Active Substance: AFLIBERCEPT
     Indication: Product used for unknown indication
     Dosage: UNK; SOLUTION FOR INJECTION
     Dates: start: 20220617

REACTIONS (3)
  - Visual acuity reduced [Unknown]
  - Bacterial endophthalmitis [Unknown]
  - Eye pain [Unknown]

NARRATIVE: CASE EVENT DATE: 20220619
